FAERS Safety Report 5010876-5 (Version None)
Quarter: 2006Q2

REPORT INFORMATION
  Report Type: 
  Country: None (occurrence: None)
  Receive Date: 20060525
  Receipt Date: 20060517
  Transmission Date: 20061013
  Serious: Yes (Other)
  Sender: FDA-Public Use
  Company Number: CH-GLAXOSMITHKLINE-B0425043A

PATIENT
  Age: 62 Year
  Sex: Male

DRUGS (1)
  1. ZENTEL [Suspect]
     Dosage: 400MG TWICE PER DAY
     Route: 048
     Dates: start: 20060426

REACTIONS (5)
  - AGITATION [None]
  - DEPRESSED LEVEL OF CONSCIOUSNESS [None]
  - DRUG LEVEL INCREASED [None]
  - INSOMNIA [None]
  - RESTLESSNESS [None]
